FAERS Safety Report 8530289-9 (Version None)
Quarter: 2012Q3

REPORT INFORMATION
  Report Type: 
  Country: None (occurrence: None)
  Receive Date: 20120710
  Receipt Date: 20120625
  Transmission Date: 20120928
  Serious: Yes (Death, Hospitalization)
  Sender: FDA-Public Use
  Company Number: 2012MA007913

PATIENT
  Age: 66 Year
  Sex: Female

DRUGS (17)
  1. NITROGLYCERIN [Concomitant]
  2. FLUOXETINE [Concomitant]
  3. ACETYLSALICYLIC ACID SRT [Concomitant]
  4. ALBUTEROL SULATE [Concomitant]
  5. LEVOTHYROXINE SODIUM [Concomitant]
  6. SIMVASTATIN [Concomitant]
  7. VAGIFEM [Suspect]
     Indication: ATROPHIC VULVOVAGINITIS
     Dosage: 25 MCG; VAGINAL
     Route: 067
     Dates: start: 20120217
  8. AMITRIPTYLINE HYDROCHLORIDE [Concomitant]
  9. TRINITRATE [Concomitant]
  10. TRIMETHOPRIM [Suspect]
     Indication: ATROPHIC VULVOVAGINITIS
     Dosage: 200 MG; BID
     Dates: start: 20120217
  11. RAMIPRIL [Concomitant]
  12. METFORMIN HYDROCHLORIDE [Concomitant]
  13. NEBIVOLOL [Concomitant]
  14. GLICLAZIDE [Concomitant]
  15. MEBEVERINE [Concomitant]
  16. SALMETEROL [Concomitant]
  17. CLOBETASOL PROPIONATE [Suspect]
     Dosage: BID; TOPICAL
     Route: 061
     Dates: start: 20120217

REACTIONS (29)
  - CEREBROVASCULAR ACCIDENT [None]
  - HYPERTENSIVE CRISIS [None]
  - ESSENTIAL HYPERTENSION [None]
  - DYSARTHRIA [None]
  - FACIAL PARESIS [None]
  - HYPERTONIA [None]
  - VISUAL FIELD DEFECT [None]
  - SNORING [None]
  - HEADACHE [None]
  - SPEECH DISORDER [None]
  - GENERAL PHYSICAL HEALTH DETERIORATION [None]
  - CARDIO-RESPIRATORY ARREST [None]
  - CEREBRAL HAEMORRHAGE [None]
  - NECK PAIN [None]
  - PUPILLARY REFLEX IMPAIRED [None]
  - BABINSKI REFLEX TEST [None]
  - MUSCLE RIGIDITY [None]
  - FACIAL ASYMMETRY [None]
  - STRESS [None]
  - MICTURITION URGENCY [None]
  - FALL [None]
  - VOMITING [None]
  - LIMB ASYMMETRY [None]
  - MUSCLE TWITCHING [None]
  - CONVULSION [None]
  - HEMIPARESIS [None]
  - VIITH NERVE PARALYSIS [None]
  - DEFAECATION URGENCY [None]
  - MUSCULAR WEAKNESS [None]
